FAERS Safety Report 6214305-5 (Version None)
Quarter: 2009Q2

REPORT INFORMATION
  Report Type: 
  Country: None (occurrence: None)
  Receive Date: 20090604
  Receipt Date: 20090526
  Transmission Date: 20091009
  Serious: Yes (Other)
  Sender: FDA-Public Use
  Company Number: US-BAYER-200921734NA

PATIENT
  Age: 23 Year
  Sex: Female

DRUGS (1)
  1. YAZ [Suspect]
     Indication: CONTRACEPTION
     Route: 048

REACTIONS (5)
  - DIABETES MELLITUS [None]
  - HYPERTENSION [None]
  - LIPOMA [None]
  - NAUSEA [None]
  - VAGINAL HAEMORRHAGE [None]
